FAERS Safety Report 5223767-1 (Version None)
Quarter: 2007Q1

REPORT INFORMATION
  Report Type: 
  Country: None (occurrence: None)
  Receive Date: 20070130
  Receipt Date: 20070124
  Transmission Date: 20070707
  Serious: Yes (Hospitalization, Other)
  Sender: FDA-Public Use
  Company Number: GB-ELI_LILLY_AND_COMPANY-GB200701005175

PATIENT
  Age: 50 Year
  Sex: Female

DRUGS (5)
  1. ZYPREXA [Suspect]
     Indication: MANIA
     Dosage: 15 MG, EACH EVENING
  2. ZYPREXA [Suspect]
     Dosage: 7.5 MG, EACH EVENING
     Dates: start: 20070101
  3. ZYPREXA [Suspect]
     Dosage: 2.5 MG, EACH EVENING
     Dates: start: 20070101, end: 20070124
  4. SERTRALINE HCL [Concomitant]
     Dosage: 100 MG, DAILY (1/D)
  5. LITHIUM CARBONATE [Concomitant]
     Dates: end: 20070101

REACTIONS (10)
  - ABNORMAL BEHAVIOUR [None]
  - AGITATION [None]
  - BLOOD PRESSURE INCREASED [None]
  - DEPRESSION [None]
  - INTENTIONAL OVERDOSE [None]
  - LIVER DISORDER [None]
  - NEUROLEPTIC MALIGNANT SYNDROME [None]
  - OVERDOSE [None]
  - RENAL IMPAIRMENT [None]
  - TACHYCARDIA [None]
